FAERS Safety Report 7602183-9 (Version None)
Quarter: 2011Q3

REPORT INFORMATION
  Report Type: 
  Country: None (occurrence: None)
  Receive Date: 20110711
  Receipt Date: 20110711
  Transmission Date: 20111222
  Serious: Yes (Other)
  Sender: FDA-Public Use
  Company Number: None

PATIENT
  Age: 68 Year

DRUGS (3)
  1. ZOCOR [Concomitant]
  2. METOPROLOL TARTRATE [Interacting]
  3. AMLODIPINE [Suspect]

REACTIONS (1)
  - LOSS OF CONSCIOUSNESS [None]
